FAERS Safety Report 22647963 (Version 2)
Quarter: 2023Q2

REPORT INFORMATION
  Report Type: Report from Study
  Country: CA (occurrence: CA)
  Receive Date: 20230628
  Receipt Date: 20230630
  Transmission Date: 20230722
  Serious: Yes (Other)
  Sender: FDA-Public Use
  Company Number: CA-JNJFOC-20220921617

PATIENT
  Age: 11 Year
  Sex: Female

DRUGS (3)
  1. REMICADE [Suspect]
     Active Substance: INFLIXIMAB
     Indication: Colitis ulcerative
     Dosage: FREQUENCY: 0,2,6 EVERY 4 WEEKS
     Route: 042
     Dates: start: 20220902
  2. REMICADE [Suspect]
     Active Substance: INFLIXIMAB
     Route: 042
  3. REMICADE [Suspect]
     Active Substance: INFLIXIMAB
     Dosage: FREQUENCY: 0,2,6 EVERY 4 WEEKS?V4: THE PATIENT RECEIVED REINDUCTION DOSE AT 0 WEEK ON 24-JUN-2023
     Route: 042

REACTIONS (2)
  - Colitis ulcerative [Unknown]
  - Off label use [Unknown]

NARRATIVE: CASE EVENT DATE: 20220902
